FAERS Safety Report 13834147 (Version 3)
Quarter: 2018Q1

REPORT INFORMATION
  Report Type: Report from Study
  Country: AT (occurrence: AT)
  Receive Date: 20170804
  Receipt Date: 20180219
  Transmission Date: 20180508
  Serious: Yes (Hospitalization)
  Sender: FDA-Public Use
  Company Number: AT-ROCHE-1967888

PATIENT
  Age: 77 Year
  Sex: Female
  Weight: 50 kg

DRUGS (10)
  1. URBASON [Suspect]
     Active Substance: METHYLPREDNISOLONE
     Indication: RHEUMATOID ARTHRITIS
     Route: 065
     Dates: start: 1975
  2. ACLASTA [Concomitant]
     Active Substance: ZOLEDRONIC ACID
  3. ATORVASTATIN [Concomitant]
     Active Substance: ATORVASTATIN
  4. VOLTAREN [Concomitant]
     Active Substance: DICLOFENAC SODIUM
  5. THROMBO ASS [Concomitant]
     Active Substance: ASPIRIN
  6. EUTHYROX [Concomitant]
     Active Substance: LEVOTHYROXINE SODIUM
  7. EBETREXAT [Suspect]
     Active Substance: METHOTREXATE SODIUM
     Indication: RHEUMATOID ARTHRITIS
     Route: 058
     Dates: start: 1995
  8. PANTOLOC [Concomitant]
     Active Substance: PANTOPRAZOLE SODIUM
  9. MEXALEN [Concomitant]
     Active Substance: ACETAMINOPHEN
  10. RITUXIMAB. [Suspect]
     Active Substance: RITUXIMAB
     Indication: RHEUMATOID ARTHRITIS
     Dosage: 2 TIMES 500 MG
     Route: 042
     Dates: start: 201608, end: 201702

REACTIONS (3)
  - Impaired healing [Not Recovered/Not Resolved]
  - Bursitis [Not Recovered/Not Resolved]
  - Bursa removal [Not Recovered/Not Resolved]

NARRATIVE: CASE EVENT DATE: 201704
